FAERS Safety Report 8853889 (Version 1)
Quarter: 2012Q4

REPORT INFORMATION
  Report Type: 
  Country: US (occurrence: US)
  Receive Date: 20121022
  Receipt Date: 20121022
  Transmission Date: 20130627
  Serious: Yes (Death, Life-Threatening, Hospitalization)
  Sender: FDA-Public Use
  Company Number: US-GENZYME-CLOF-1002323

PATIENT
  Age: 17 Year
  Sex: Female
  Weight: 45.4 kg

DRUGS (18)
  1. CLOLAR [Suspect]
     Indication: LYMPHOCYTIC LEUKAEMIA
     Dosage: 30 mg/m2, course 2, over 2 hrs days 29-33, UNK
     Route: 042
     Dates: start: 20120502, end: 20120608
  2. CYCLOPHOSPHAMIDE [Suspect]
     Indication: LYMPHOCYTIC LEUKAEMIA
     Dosage: 1000 mg/m2, over 30-60 minutes, day 1-28, consolidation therapy part 1, UNK
     Route: 042
  3. CYCLOPHOSPHAMIDE [Suspect]
     Dosage: 440 mg/m2, over 15-30 minutes, day 29-33, Consolidation Part 2, UNK
     Route: 042
     Dates: start: 20120502, end: 20120608
  4. CYTARABINE [Suspect]
     Indication: LYMPHOCYTIC LEUKAEMIA
     Dosage: 70 mg, day 1, induction therapy, UNK
     Route: 037
     Dates: start: 20120316
  5. CYTARABINE [Suspect]
     Dosage: 75 mg/m2, over 15-30 minutes, days 1-4 and days 8-11, consolidation therapy part 1, UNK
     Route: 042
     Dates: end: 20120512
  6. ETOPOSIDE [Suspect]
     Indication: LYMPHOCYTIC LEUKAEMIA
     Dosage: 100 mg/m2, over 60-120 minutes days 29-33, Consolidation Part 2,
     Route: 042
     Dates: start: 20120502, end: 20120608
  7. ETOPOSIDE [Suspect]
  8. MERCAPTOPURINE [Suspect]
     Indication: LYMPHOCYTIC LEUKAEMIA
     Dosage: 60 mg/m2, once, days 1-14, day 1-28, consolidation therapy part 1, once
     Route: 048
     Dates: end: 20120514
  9. METHOTREXATE [Suspect]
     Indication: LYMPHOCYTIC LEUKAEMIA
     Dosage: 15 mg, day 8 and 29, induction therapy, UNK
     Route: 037
     Dates: start: 20120316
  10. METHOTREXATE [Suspect]
     Dosage: 15 mg, days 1, 8, 15 and 22, consolidation part 1, UNK
     Route: 037
     Dates: end: 20120524
  11. PEG-L-ASPARAGINASE (PEGASPARGASE, ONCOSPAR) [Suspect]
     Indication: LYMPHOCYTIC LEUKAEMIA
     Dosage: 2500 iu/m2, over 1-2 hrs day 4, UNK,  induction therapy,
     Route: 042
     Dates: start: 20120316
  12. PEG-L-ASPARAGINASE (PEGASPARGASE, ONCOSPAR) [Suspect]
     Dosage: 2500 iu/m2, over 1-2 hrs, day 15, day 1-28, consolidation therapy part 1, UNK
     Route: 042
  13. PEG-L-ASPARAGINASE (PEGASPARGASE, ONCOSPAR) [Suspect]
     Dosage: 2500 iu/m2, over 1-2 hrs, day 43,  Consolidation Part 2, UNK
     Route: 042
     Dates: start: 20120502, end: 20120514
  14. VINCRISTINE [Suspect]
     Indication: LYMPHOCYTIC LEUKAEMIA
     Dosage: 2 mg/m2, days 1, 8, 15 and 22,  induction therapy, UNK
     Route: 042
     Dates: start: 20120316
  15. VINCRISTINE [Suspect]
     Dosage: 2 mg/m2, days 15 and 22, day 1-28, consolidation therapy part 1, UNK
     Route: 042
  16. VINCRISTINE [Suspect]
     Dosage: 2 mg/m2,  days 43 and 50, Consolidation Part 2, UNK
     Route: 042
     Dates: start: 20120502, end: 20120524
  17. PREDNISONE [Suspect]
     Indication: LYMPHOCYTIC LEUKAEMIA
     Dosage: 45 mg/m2, days 1-28,  induction therapy, bid
     Route: 048
     Dates: start: 20120316
  18. DAUNORUBICIN [Suspect]
     Indication: LYMPHOCYTIC LEUKAEMIA
     Dosage: 25 mg/m2, over 1-15 minutes days 1, 8, 15, 22,  induction therapy, UNK
     Route: 042
     Dates: start: 20120316

REACTIONS (11)
  - Cardiac tamponade [Fatal]
  - Lipase abnormal [Unknown]
  - Hypertension [Recovered/Resolved]
  - Respiratory failure [Not Recovered/Not Resolved]
  - Neutrophil count decreased [Not Recovered/Not Resolved]
  - Skin infection [Not Recovered/Not Resolved]
  - Pancreatitis [Unknown]
  - Renal failure acute [Not Recovered/Not Resolved]
  - Sepsis [Unknown]
  - Pneumocystis jiroveci pneumonia [Unknown]
  - Post procedural infection [Unknown]
